FAERS Safety Report 8374063-5 (Version None)
Quarter: 2012Q2

REPORT INFORMATION
  Report Type: 
  Country: None (occurrence: None)
  Receive Date: 20120521
  Receipt Date: 20120510
  Transmission Date: 20120825
  Serious: Yes (Other)
  Sender: FDA-Public Use
  Company Number: CA-ASTRAZENECA-2012SE30463

PATIENT
  Age: 78 Year
  Sex: Male

DRUGS (12)
  1. ATORVASTATIN CALCIUM [Concomitant]
     Indication: PROPHYLAXIS
     Dosage: 40
     Route: 048
  2. WARFARIN SODIUM [Concomitant]
     Indication: ANTICOAGULANT THERAPY
     Dosage: VARIABLE
     Route: 048
  3. ASPIRIN [Concomitant]
     Dosage: 80
     Route: 048
  4. ATENOLOL [Concomitant]
     Indication: HYPERTENSION
     Dosage: 25
     Route: 048
  5. AMLODIPINE BESYLATE [Concomitant]
     Indication: HYPERTENSION
     Dosage: 10
     Route: 048
  6. NEXIUM [Suspect]
     Indication: PROPHYLAXIS AGAINST GASTROINTESTINAL ULCER
     Route: 048
     Dates: start: 20101101
  7. ATENOLOL [Concomitant]
     Dosage: 50
     Route: 048
  8. ISOSORBIDE MONONITRATE [Concomitant]
     Indication: ANGINA PECTORIS
     Route: 048
  9. FLOMAX [Concomitant]
     Indication: BENIGN PROSTATIC HYPERPLASIA
     Dosage: 4
     Route: 048
  10. VITAMIN D [Concomitant]
     Indication: WEIGHT CONTROL
     Dosage: 1000
     Route: 048
  11. ATENOLOL [Concomitant]
     Indication: ANGINA PECTORIS
     Dosage: 25
     Route: 048
  12. ATENOLOL [Concomitant]
     Dosage: 50
     Route: 048

REACTIONS (1)
  - ANGINA PECTORIS [None]
